FAERS Safety Report 7552996-7 (Version None)
Quarter: 2011Q2

REPORT INFORMATION
  Report Type: 
  Country: None (occurrence: None)
  Receive Date: 20110616
  Receipt Date: 20110613
  Transmission Date: 20111010
  Serious: Yes (Death, Other)
  Sender: FDA-Public Use
  Company Number: US-CELGENEUS-163-21880-11012115

PATIENT
  Sex: Male
  Weight: 73.548 kg

DRUGS (17)
  1. POTASSIUM [Concomitant]
     Dosage: 75 MILLIGRAM
     Route: 065
  2. OMEPRAZOLE [Concomitant]
     Dosage: 40 MILLIGRAM
     Route: 065
  3. IMODIUM MULTI-SYMPTOM RELIEF [Concomitant]
     Route: 065
     Dates: start: 20100211
  4. LYRICA [Concomitant]
     Dosage: 75 MILLIGRAM
     Route: 065
  5. AMLODIPINE [Concomitant]
     Dosage: 5 MILLIGRAM
     Route: 065
  6. DEXAMETHASONE [Concomitant]
     Dosage: 4 MILLIGRAM
     Route: 065
  7. REVLIMID [Suspect]
     Indication: MULTIPLE MYELOMA
     Dosage: 25 MILLIGRAM
     Route: 048
     Dates: start: 20081101
  8. VITAMIN D [Concomitant]
     Dosage: 5000 IU (INTERNATIONAL UNIT)
     Route: 065
  9. LEVOTHYROXINE SODIUM [Concomitant]
     Dosage: 50 MICROGRAM
     Route: 065
  10. AREDIA [Concomitant]
     Dosage: 30 MILLIGRAM
     Route: 065
  11. LISINOPRIL [Concomitant]
     Dosage: 20 MILLIGRAM
     Route: 065
  12. ARANESP [Concomitant]
     Dosage: 100 MICROGRAM
     Route: 050
  13. TOPROL-XL [Concomitant]
     Dosage: 25 MILLIGRAM
     Route: 065
  14. ASPIRIN [Concomitant]
     Dosage: 81 MILLIGRAM
     Route: 065
  15. VELCADE [Concomitant]
     Dosage: 3.5 MILLIGRAM
     Route: 050
  16. SIMVASTATIN [Concomitant]
     Dosage: 40 MILLIGRAM
     Route: 065
  17. VITAMIN B-12 [Concomitant]
     Route: 065

REACTIONS (10)
  - VOMITING [None]
  - BRONCHITIS [None]
  - DEHYDRATION [None]
  - RENAL FAILURE ACUTE [None]
  - DIARRHOEA [None]
  - HYPERKALAEMIA [None]
  - RED BLOOD CELL COUNT DECREASED [None]
  - CORONARY ARTERY DISEASE [None]
  - ORAL HERPES [None]
  - CARDIAC ARREST [None]
